FAERS Safety Report 21630790 (Version 1)
Quarter: 2022Q4

REPORT INFORMATION
  Report Type: Spontaneous
  Country: US (occurrence: US)
  Receive Date: 20221123
  Receipt Date: 20221123
  Transmission Date: 20230113
  Serious: No
  Sender: FDA-Public Use
  Company Number: US-BRISTOL-MYERS SQUIBB COMPANY-2022-141849

PATIENT
  Age: 56 Year
  Sex: Female

DRUGS (1)
  1. REVLIMID [Suspect]
     Active Substance: LENALIDOMIDE
     Indication: Plasma cell myeloma
     Dosage: INDICATION: GENETIC CARRIER OF OTHER DISEASE, MULTIPLE MYELOMA IN REMISSION, LOCALIZED ENLARGED LYMP
     Route: 048
     Dates: start: 20220624

REACTIONS (2)
  - Lymphadenopathy [Unknown]
  - Platelet count decreased [Unknown]
